FAERS Safety Report 10888384 (Version 2)
Quarter: 2015Q2

REPORT INFORMATION
  Report Type: Spontaneous
  Country: DE (occurrence: DE)
  Receive Date: 20150305
  Receipt Date: 20150515
  Transmission Date: 20150821
  Serious: Yes (Other)
  Sender: FDA-Public Use
  Company Number: DE-BAYER-2014-122497

PATIENT
  Age: 41 Year
  Sex: Female

DRUGS (3)
  1. IRON [Concomitant]
     Active Substance: IRON
     Indication: SUPPLEMENTATION THERAPY
     Route: 048
  2. MIRENA [Suspect]
     Active Substance: LEVONORGESTREL
     Indication: MENORRHAGIA
     Dosage: 20 MCG/24HR, CONT
     Route: 015
  3. MIRENA [Suspect]
     Active Substance: LEVONORGESTREL
     Indication: MENORRHAGIA
     Dosage: 20 MCG/24HR, CONT
     Route: 015
     Dates: start: 20140704

REACTIONS (8)
  - Device dislocation [Not Recovered/Not Resolved]
  - Amenorrhoea [Recovered/Resolved]
  - Endometrial hypertrophy [Recovered/Resolved]
  - Abnormal withdrawal bleeding [Recovering/Resolving]
  - Genital haemorrhage [Recovered/Resolved]
  - Cervical polypectomy [None]
  - Vaginal haemorrhage [Recovering/Resolving]
  - Vaginal haemorrhage [Recovered/Resolved]

NARRATIVE: CASE EVENT DATE: 20140804
